FAERS Safety Report 17952312 (Version 1)
Quarter: 2020Q2

REPORT INFORMATION
  Report Type: Report from Study
  Country: None (occurrence: US)
  Receive Date: 20200627
  Receipt Date: 20200627
  Transmission Date: 20200714
  Serious: Yes (Other)
  Sender: FDA-Public Use
  Company Number: US-ABBVIE-19K-163-2787323-00

PATIENT
  Age: 80 Year
  Sex: Male

DRUGS (8)
  1. AMLODIPINE [Suspect]
     Active Substance: AMLODIPINE BESYLATE
     Route: 065
  2. PROBIOTICS [Concomitant]
     Active Substance: PROBIOTICS NOS
     Indication: PRODUCT USED FOR UNKNOWN INDICATION
     Dates: end: 202005
  3. VENCLEXTA [Suspect]
     Active Substance: VENETOCLAX
     Dosage: 300 MG EVERY OTHER DAY ALTERNATING WITH 200 MG EVERY OTHER DAY
     Route: 048
     Dates: start: 2019, end: 20200515
  4. VENCLEXTA [Suspect]
     Active Substance: VENETOCLAX
     Route: 048
     Dates: start: 201906, end: 2019
  5. AMLODIPINE [Suspect]
     Active Substance: AMLODIPINE BESYLATE
     Indication: PRODUCT USED FOR UNKNOWN INDICATION
     Route: 065
  6. VENCLEXTA [Suspect]
     Active Substance: VENETOCLAX
     Indication: CHRONIC LYMPHOCYTIC LEUKAEMIA
     Route: 048
     Dates: start: 20180619
  7. LUPRON [Suspect]
     Active Substance: LEUPROLIDE ACETATE
     Indication: PROSTATE CANCER
     Dosage: EVERY 6 MONTHS FOR ABOUT A YEAR AND A HALF
     Route: 030
  8. VITAMIN D3 [Concomitant]
     Active Substance: CHOLECALCIFEROL
     Indication: PRODUCT USED FOR UNKNOWN INDICATION
     Dates: end: 202005

REACTIONS (19)
  - Peripheral swelling [Unknown]
  - Pyrexia [Recovered/Resolved]
  - Intentional product misuse [Not Recovered/Not Resolved]
  - Blood glucose increased [Unknown]
  - White blood cell count decreased [Recovered/Resolved]
  - Metastases to bone marrow [Unknown]
  - Temperature intolerance [Unknown]
  - Serum ferritin increased [Not Recovered/Not Resolved]
  - White blood cell count decreased [Recovering/Resolving]
  - Hypotension [Unknown]
  - Chronic obstructive pulmonary disease [Not Recovered/Not Resolved]
  - Bone marrow leukaemic cell infiltration [Unknown]
  - Bone disorder [Not Recovered/Not Resolved]
  - Haemoglobin decreased [Unknown]
  - Prostate cancer metastatic [Unknown]
  - Prostate cancer [Unknown]
  - Asthenia [Recovering/Resolving]
  - Fatigue [Not Recovered/Not Resolved]
  - Pyrexia [Recovering/Resolving]

NARRATIVE: CASE EVENT DATE: 2018
